APPROVED DRUG PRODUCT: CYCLOBENZAPRINE HYDROCHLORIDE
Active Ingredient: CYCLOBENZAPRINE HYDROCHLORIDE
Strength: 7.5MG
Dosage Form/Route: TABLET;ORAL
Application: A073144 | Product #003
Applicant: RISING PHARMA HOLDING INC
Approved: Mar 25, 2013 | RLD: No | RS: No | Type: DISCN